FAERS Safety Report 21433386 (Version 2)
Quarter: 2022Q4

REPORT INFORMATION
  Report Type: Spontaneous
  Country: US (occurrence: US)
  Receive Date: 20221010
  Receipt Date: 20221229
  Transmission Date: 20230112
  Serious: No
  Sender: FDA-Public Use
  Company Number: US-ALKEM LABORATORIES LIMITED-US-ALKEM-2022-08229

PATIENT
  Age: 17 Year

DRUGS (2)
  1. SIROLIMUS [Suspect]
     Active Substance: SIROLIMUS
     Indication: Lymphatic disorder
     Dosage: 0.8 MILLIGRAM/SQ. METER, BID
     Route: 061
  2. SIROLIMUS [Suspect]
     Active Substance: SIROLIMUS
     Indication: Tongue haemorrhage

REACTIONS (3)
  - Stomatitis [Unknown]
  - Nausea [Unknown]
  - Disease recurrence [Unknown]
